FAERS Safety Report 12648337 (Version 1)
Quarter: 2016Q3

REPORT INFORMATION
  Report Type: Spontaneous
  Country: US (occurrence: US)
  Receive Date: 20160812
  Receipt Date: 20160812
  Transmission Date: 20161109
  Serious: No
  Sender: FDA-Public Use
  Company Number: US-VIFOR (INTERNATIONAL) INC.-VIT-2014-02714

PATIENT
  Age: 42 Year
  Sex: Female
  Weight: 84.5 kg

DRUGS (5)
  1. RENVELA [Concomitant]
     Active Substance: SEVELAMER CARBONATE
  2. VELPHORO [Suspect]
     Active Substance: FERRIC OXYHYDROXIDE
     Indication: HYPERPHOSPHATAEMIA
     Route: 048
     Dates: start: 201410, end: 201411
  3. COREG [Concomitant]
     Active Substance: CARVEDILOL
     Dates: start: 201501
  4. RENVELA [Concomitant]
     Active Substance: SEVELAMER CARBONATE
  5. FOSRENOL [Concomitant]
     Active Substance: LANTHANUM CARBONATE

REACTIONS (2)
  - Gastrointestinal disorder [Unknown]
  - Diarrhoea [Recovering/Resolving]

NARRATIVE: CASE EVENT DATE: 2014
